FAERS Safety Report 9339419 (Version 1)
Quarter: 2013Q2

REPORT INFORMATION
  Report Type: Spontaneous
  Country: FR (occurrence: FR)
  Receive Date: 20130610
  Receipt Date: 20130610
  Transmission Date: 20140414
  Serious: Yes (Hospitalization)
  Sender: FDA-Public Use
  Company Number: FR-BIOGENIDEC-2013BI051209

PATIENT
  Age: 46 Year
  Sex: Female

DRUGS (10)
  1. TYSABRI [Suspect]
     Indication: MULTIPLE SCLEROSIS
     Route: 042
     Dates: start: 2007
  2. AERIUS [Concomitant]
  3. ATARAX [Concomitant]
  4. VENTOLINE [Concomitant]
  5. OESTRODOSE [Concomitant]
  6. UTROGESTAN [Concomitant]
  7. NASACORT [Concomitant]
  8. OMEPRAZOLE [Concomitant]
  9. LYRICA [Concomitant]
  10. OROKEN [Concomitant]
     Dates: start: 20130412, end: 20130416

REACTIONS (2)
  - Urticaria [Recovered/Resolved]
  - Dyspnoea [Recovered/Resolved]
